FAERS Safety Report 20110650 (Version 1)
Quarter: 2021Q4

REPORT INFORMATION
  Report Type: Spontaneous
  Country: NO (occurrence: NO)
  Receive Date: 20211124
  Receipt Date: 20211124
  Transmission Date: 20220303
  Serious: Yes (Hospitalization)
  Sender: FDA-Public Use
  Company Number: None

PATIENT
  Age: 38 Year
  Sex: Male
  Weight: 83 kg

DRUGS (1)
  1. PENICILLIN V POTASSIUM [Suspect]
     Active Substance: PENICILLIN V POTASSIUM
     Indication: Borrelia infection
     Dosage: 1000 MG , ADDITIONAL INFO : J01CE02 - PHENOXYMETHYLPENICILLIN
     Route: 048
     Dates: start: 201705, end: 201705

REACTIONS (4)
  - Drug hypersensitivity [Recovered/Resolved]
  - Rash [Unknown]
  - Dyspnoea [Unknown]
  - Hospitalisation [Unknown]
